FAERS Safety Report 8571822-0 (Version None)
Quarter: 2012Q3

REPORT INFORMATION
  Report Type: 
  Country: None (occurrence: None)
  Receive Date: 20120806
  Receipt Date: 20120727
  Transmission Date: 20120928
  Serious: Yes (Other)
  Sender: FDA-Public Use
  Company Number: JP-VERTEX PHARMACEUTICALS INC.-AE-2012-003965

PATIENT
  Age: 67 Year
  Sex: Male

DRUGS (13)
  1. RIBAVIRIN [Concomitant]
     Route: 048
     Dates: start: 20120209, end: 20120217
  2. METFORMIN HCL [Concomitant]
     Route: 048
  3. ENALAPRIL MALEATE [Concomitant]
     Route: 048
  4. AMLODIPINE [Concomitant]
     Route: 048
  5. JANUVIA [Concomitant]
     Route: 048
  6. PEGINTERFERON ALFA-2B [Concomitant]
     Route: 058
     Dates: start: 20120120, end: 20120217
  7. RIBAVIRIN [Concomitant]
     Indication: HEPATITIS C
     Route: 048
     Dates: start: 20120120, end: 20120202
  8. PREDNISOLONE [Concomitant]
  9. DIFLORASONE DIACETATE [Concomitant]
     Route: 061
  10. TELAVIC (TELAPREVIR) [Suspect]
     Indication: HEPATITIS C
     Route: 048
     Dates: start: 20120120, end: 20120216
  11. TELAVIC (TELAPREVIR) [Suspect]
     Route: 048
     Dates: start: 20120217, end: 20120223
  12. PRAVASTATIN [Concomitant]
     Route: 048
  13. RIBAVIRIN [Concomitant]
     Route: 048
     Dates: start: 20120203, end: 20120208

REACTIONS (3)
  - RENAL IMPAIRMENT [None]
  - HAEMOGLOBIN DECREASED [None]
  - ANAEMIA [None]
